FAERS Safety Report 9343577 (Version 2)
Quarter: 2013Q2

REPORT INFORMATION
  Report Type: Spontaneous
  Country: US (occurrence: US)
  Receive Date: 20130612
  Receipt Date: 20130620
  Transmission Date: 20140414
  Serious: Yes (Death)
  Sender: FDA-Public Use
  Company Number: US-009507513-1306USA001738

PATIENT
  Age: 56 Year
  Sex: Female

DRUGS (9)
  1. DULERA [Suspect]
     Indication: ASTHMA
     Dosage: UNK
     Route: 049
     Dates: start: 20130319
  2. XOLAIR [Concomitant]
     Dosage: 300 MG, EVERY FOUR WEEKS
     Dates: start: 20050105, end: 20130227
  3. SINGULAIR [Concomitant]
     Dosage: UNK
     Route: 048
     Dates: start: 200409
  4. UNIPHYL [Concomitant]
     Dosage: UNK
     Dates: start: 200409
  5. ALBUTEROL [Concomitant]
     Dosage: UNK
     Route: 055
     Dates: start: 200409
  6. ASTEPRO [Concomitant]
  7. PREDNISONE [Concomitant]
  8. DUONEB [Concomitant]
     Dosage: UNK
     Dates: start: 200701
  9. SYMBICORT [Concomitant]
     Dosage: UNK
     Dates: start: 200802, end: 20130319

REACTIONS (1)
  - Death [Fatal]
